FAERS Safety Report 7389807-9 (Version None)
Quarter: 2011Q2

REPORT INFORMATION
  Report Type: 
  Country: None (occurrence: None)
  Receive Date: 20110401
  Receipt Date: 20110322
  Transmission Date: 20111010
  Serious: Yes (Hospitalization, Other)
  Sender: FDA-Public Use
  Company Number: US-ELI_LILLY_AND_COMPANY-US201103008598

PATIENT
  Age: 23 Year
  Sex: Female

DRUGS (3)
  1. LANTUS [Concomitant]
  2. HUMALOG [Suspect]
     Indication: DIABETES MELLITUS
     Dosage: UNK UNK, PRN
     Route: 058
  3. NOVOLOG [Concomitant]

REACTIONS (7)
  - OBESITY SURGERY [None]
  - ANAPHYLACTIC SHOCK [None]
  - BLOOD GLUCOSE INCREASED [None]
  - DRUG DOSE OMISSION [None]
  - INFECTION [None]
  - LIVER DISORDER [None]
  - LOSS OF CONSCIOUSNESS [None]
